FAERS Safety Report 14823588 (Version 1)
Quarter: 2018Q2

REPORT INFORMATION
  Report Type: Report from Study
  Country: US (occurrence: US)
  Receive Date: 20180428
  Receipt Date: 20180428
  Transmission Date: 20180711
  Serious: Yes (Death)
  Sender: FDA-Public Use
  Company Number: US-TAKEDA-2018TUS004469

PATIENT
  Age: 53 Year
  Sex: Male

DRUGS (2)
  1. BRIGATINIB [Suspect]
     Active Substance: BRIGATINIB
     Indication: BRONCHIAL CARCINOMA
     Dosage: 30 MG, UNK
     Route: 048
     Dates: start: 201802
  2. BRIGATINIB [Suspect]
     Active Substance: BRIGATINIB
     Dosage: 90 MG, QD
     Route: 048
     Dates: start: 20180220

REACTIONS (7)
  - Neuropathy peripheral [Unknown]
  - Blood pressure increased [Unknown]
  - Death [Fatal]
  - Headache [Unknown]
  - Fatigue [Not Recovered/Not Resolved]
  - Dyspnoea exertional [Unknown]
  - Constipation [Unknown]

NARRATIVE: CASE EVENT DATE: 20180413
